FAERS Safety Report 5906123-X (Version None)
Quarter: 2008Q4

REPORT INFORMATION
  Report Type: 
  Country: None (occurrence: None)
  Receive Date: 20081002
  Receipt Date: 20080925
  Transmission Date: 20090506
  Serious: Yes (Other)
  Sender: FDA-Public Use
  Company Number: PHHY2008FR13635

PATIENT
  Sex: Male
  Weight: 99 kg

DRUGS (2)
  1. LAMISIL [Suspect]
     Dosage: 250 MG/DAY
     Dates: start: 20050720, end: 20051104
  2. ZOFENIL [Concomitant]
     Indication: HYPERTENSION

REACTIONS (4)
  - ABDOMINAL PAIN [None]
  - COLITIS COLLAGENOUS [None]
  - COLITIS ULCERATIVE [None]
  - DIARRHOEA [None]
